FAERS Safety Report 8879118 (Version 1)
Quarter: 2012Q4

REPORT INFORMATION
  Report Type: Spontaneous
  Country: FR (occurrence: None)
  Receive Date: 20121025
  Receipt Date: 20121025
  Transmission Date: 20130627
  Serious: Yes (Hospitalization)
  Sender: FDA-Public Use
  Company Number: FR-DEXPHARM-20121329

PATIENT
  Age: 69 Year
  Sex: Male

DRUGS (9)
  1. OMEPRAZOLE (OMEPRAZOLE) [Suspect]
  2. ASPIRIN [Concomitant]
  3. ATORVASTATIN [Concomitant]
  4. GALANTAMINE [Concomitant]
  5. LERCANIDIPINE [Concomitant]
  6. MIRTAZAPINE [Concomitant]
  7. OXAZEPAM [Concomitant]
  8. RISPERIDONE [Concomitant]
  9. ZOPICLONE [Concomitant]

REACTIONS (4)
  - Hypocalcaemia [None]
  - Hypomagnesaemia [None]
  - Abdominal pain [None]
  - Hyperthermia [None]
